FAERS Safety Report 20544701 (Version 4)
Quarter: 2024Q1

REPORT INFORMATION
  Report Type: Spontaneous
  Country: JP (occurrence: JP)
  Receive Date: 20220303
  Receipt Date: 20240308
  Transmission Date: 20240410
  Serious: Yes (Death, Hospitalization, Other)
  Sender: FDA-Public Use
  Company Number: JP-TEVA-2022-JP-2012891

PATIENT
  Age: 90 Year
  Sex: Female
  Weight: 60 kg

DRUGS (21)
  1. AZILECT [Suspect]
     Active Substance: RASAGILINE MESYLATE
     Indication: Parkinson^s disease
     Route: 048
     Dates: start: 20210415, end: 20211003
  2. AZILECT [Suspect]
     Active Substance: RASAGILINE MESYLATE
     Indication: Parkinson^s disease
     Route: 048
     Dates: start: 20210415, end: 20211003
  3. DIART [Concomitant]
     Indication: Product used for unknown indication
     Dosage: DOSAGE TEXT: THERAPY END DATE: 03-OCT-2021.
     Route: 065
     Dates: end: 20211003
  4. NITRODERM [Concomitant]
     Active Substance: NITROGLYCERIN
     Indication: Product used for unknown indication
     Dosage: DOSAGE TEXT: THERAPY END DATE: 03-OCT-2021.
     Route: 065
     Dates: end: 20211003
  5. ROSUVASTATROSUVASTATININ [Concomitant]
     Indication: Product used for unknown indication
     Dosage: DOSAGE TEXT: THERAPY END DATE: 19-AUG-2021.
     Route: 065
     Dates: end: 20210819
  6. ZOLPIDEM TARTRATE [Concomitant]
     Active Substance: ZOLPIDEM TARTRATE
     Indication: Product used for unknown indication
     Dosage: DOSAGE TEXT: THERAPY END DATE: 19-AUG-2021
     Route: 065
     Dates: end: 20210819
  7. CARBIDOPA\LEVODOPA [Concomitant]
     Active Substance: CARBIDOPA\LEVODOPA
     Indication: Product used for unknown indication
     Route: 048
  8. CARBIDOPA\LEVODOPA [Concomitant]
     Active Substance: CARBIDOPA\LEVODOPA
     Indication: Product used for unknown indication
     Dosage: DOSAGE TEXT: THERAPY START DATE: -APR-2020
     Route: 048
     Dates: start: 202004
  9. CARBIDOPA\LEVODOPA [Concomitant]
     Active Substance: CARBIDOPA\LEVODOPA
     Indication: Product used for unknown indication
     Dosage: DOSAGE TEXT: THERAPY START DATE: -MAY-2020
     Route: 048
     Dates: start: 202005
  10. CARBIDOPA\LEVODOPA [Concomitant]
     Active Substance: CARBIDOPA\LEVODOPA
     Indication: Product used for unknown indication
     Dosage: DOSAGE TEXT: THERAPY START DATE:  -JUN-2020
     Route: 048
     Dates: start: 202006
  11. CARBIDOPA\LEVODOPA [Concomitant]
     Active Substance: CARBIDOPA\LEVODOPA
     Indication: Product used for unknown indication
     Dosage: DOSAGE TEXT: THERAPY START DATE: -AUG-2020
     Route: 048
     Dates: start: 202008
  12. CARBIDOPA\LEVODOPA [Concomitant]
     Active Substance: CARBIDOPA\LEVODOPA
     Indication: Product used for unknown indication
     Dosage: DOSAGE TEXT: THERAPY START DATE: -SEP-2020
     Route: 048
     Dates: start: 202009
  13. CARBIDOPA\LEVODOPA [Concomitant]
     Active Substance: CARBIDOPA\LEVODOPA
     Indication: Product used for unknown indication
     Dosage: DOSAGE TEXT: THERAPY START DATE: -DEC-2021
     Route: 048
     Dates: start: 202112
  14. CARBIDOPA\LEVODOPA [Concomitant]
     Active Substance: CARBIDOPA\LEVODOPA
     Indication: Product used for unknown indication
     Dosage: DOSAGE TEXT: THERAPY START DATE: 31-AUG-2019
     Route: 048
     Dates: start: 20190831
  15. CARBIDOPA\LEVODOPA [Concomitant]
     Active Substance: CARBIDOPA\LEVODOPA
     Indication: Product used for unknown indication
     Dosage: DOSAGE TEXT: THERAPY START DATE: -FEB-2021
     Route: 048
     Dates: start: 202102
  16. DOMPERIDONE [Concomitant]
     Active Substance: DOMPERIDONE
     Indication: Product used for unknown indication
     Route: 065
     Dates: start: 20201202, end: 20211003
  17. ROPINIROLE HYDROCHLORIDE [Concomitant]
     Active Substance: ROPINIROLE HYDROCHLORIDE
     Indication: Product used for unknown indication
     Dosage: DOSAGE TEXT: THERAPY START DATE: -JAN-2021
     Route: 065
     Dates: start: 202101
  18. ROPINIROLE HYDROCHLORIDE [Concomitant]
     Active Substance: ROPINIROLE HYDROCHLORIDE
     Indication: Product used for unknown indication
     Dosage: DOSAGE TEXT: THERAPY START DATE: 02-DEC-2020
     Route: 065
     Dates: start: 20201202
  19. CLONAZEPAM [Concomitant]
     Active Substance: CLONAZEPAM
     Indication: Product used for unknown indication
     Route: 065
     Dates: start: 20210217, end: 20211003
  20. AZELNIDIPINE [Concomitant]
     Active Substance: AZELNIDIPINE
     Indication: Product used for unknown indication
     Dosage: DOSAGE TEXT: THERAPY END DATE: 03-OCT-2021.
     Route: 065
     Dates: end: 20211003
  21. FEBUXOSTAT [Concomitant]
     Active Substance: FEBUXOSTAT
     Indication: Product used for unknown indication
     Dosage: DOSAGE TEXT: THERAPY END DATE: 03-OCT-2021.
     Route: 065
     Dates: end: 20211003

REACTIONS (8)
  - Death [Fatal]
  - Cholelithiasis [Unknown]
  - Bile duct stone [Unknown]
  - Chest X-ray abnormal [Unknown]
  - Cardiomegaly [Unknown]
  - Bundle branch block right [Unknown]
  - Left ventricular hypertrophy [Unknown]
  - Pyrexia [Unknown]

NARRATIVE: CASE EVENT DATE: 20210818
